FAERS Safety Report 5971911-0 (Version None)
Quarter: 2008Q4

REPORT INFORMATION
  Report Type: 
  Country: None (occurrence: None)
  Receive Date: 20081201
  Receipt Date: 20081120
  Transmission Date: 20090506
  Serious: Yes (Hospitalization, Other)
  Sender: FDA-Public Use
  Company Number: US-BIOGENIDEC-2008BI003230

PATIENT
  Age: 69 Year
  Sex: Female
  Weight: 77 kg

DRUGS (1)
  1. AVONEX [Suspect]
     Indication: MULTIPLE SCLEROSIS
     Route: 030
     Dates: start: 20070727

REACTIONS (8)
  - CEREBRAL ATROPHY [None]
  - FALL [None]
  - HEAD INJURY [None]
  - HYDROCEPHALUS [None]
  - PAIN IN EXTREMITY [None]
  - SCAR [None]
  - SUBDURAL HAEMATOMA [None]
  - VAGINAL HAEMORRHAGE [None]
